FAERS Safety Report 9261013 (Version 1)
Quarter: 2013Q2

REPORT INFORMATION
  Report Type: Spontaneous
  Country: US (occurrence: US)
  Receive Date: 20130429
  Receipt Date: 20130429
  Transmission Date: 20140414
  Serious: Yes (Hospitalization)
  Sender: FDA-Public Use
  Company Number: US-INCYTE CORPORATION-2013IN000854

PATIENT
  Age: 90 Year
  Sex: Female

DRUGS (11)
  1. JAKAFI [Suspect]
     Indication: LYMPHOMA
     Dosage: 5 MG, BID
  2. JAKAFI [Suspect]
     Indication: PLATELET COUNT INCREASED
  3. RITUXAN [Suspect]
  4. PLAVIX [Concomitant]
  5. ASPIRIN [Concomitant]
     Dosage: 325 MG
  6. DIGOXIN [Concomitant]
  7. FUROSEMIDE [Concomitant]
  8. MUCINEX [Concomitant]
  9. MULTIVITAMIN [Concomitant]
  10. XARELTO [Concomitant]
  11. ZOLOFT [Concomitant]

REACTIONS (1)
  - Pneumonia [Unknown]
